FAERS Safety Report 11145870 (Version 1)
Quarter: 2015Q2

REPORT INFORMATION
  Report Type: Spontaneous
  Country: US (occurrence: US)
  Receive Date: 20150528
  Receipt Date: 20150528
  Transmission Date: 20150821
  Serious: Yes (Other)
  Sender: FDA-Public Use
  Company Number: US-ASTRAZENECA-2015SE52011

PATIENT
  Age: 45 Year
  Sex: Female
  Weight: 63 kg

DRUGS (21)
  1. IBRANCE [Suspect]
     Active Substance: PALBOCICLIB
     Indication: BREAST CANCER METASTATIC
     Dosage: 125 MG, DAILY FOR THREE WEEKS
     Route: 048
     Dates: start: 20150505
  2. AMITIZA [Concomitant]
     Active Substance: LUBIPROSTONE
     Dosage: 24 MCG CAPSULE(S) TAKE 1 PO BID
     Route: 048
  3. HYDROCODONE BITARTRATE AND ACETAMINOPHEN [Concomitant]
     Active Substance: ACETAMINOPHEN\HYDROCODONE BITARTRATE
     Indication: PAIN
     Dosage: 10MG-325MG TABLET(S) TAKE 1 PO Q4H AS REQUIRED
     Route: 048
  4. LACTULOSE. [Concomitant]
     Active Substance: LACTULOSE
     Indication: CONSTIPATION
     Dosage: 10 G/15 ML SOLUTION, ORAL TAKE 15 ML PO BID AS REQUIRED
     Route: 048
  5. VITAMIN B12 [Concomitant]
     Active Substance: CYANOCOBALAMIN
     Dosage: SOLID
     Route: 048
  6. DIAZEPAM. [Concomitant]
     Active Substance: DIAZEPAM
     Dosage: 5 MG TABLET(S) TAKE 1 PO AS DIRECTED
     Route: 048
  7. MORPHINE SULFATE. [Concomitant]
     Active Substance: MORPHINE SULFATE
     Dosage: 100 MG/5ML SOLUTION, ORAL TAKE 1 ML PO AS DIRECTED
     Route: 048
  8. CALCIUM CARBONATE. [Concomitant]
     Active Substance: CALCIUM CARBONATE
     Dosage: SOLID
     Route: 048
  9. HYDROCODONE BITARTRATE. [Concomitant]
     Active Substance: HYDROCODONE BITARTRATE
     Dosage: SOLID
     Route: 048
  10. LETROZOLE. [Concomitant]
     Active Substance: LETROZOLE
     Route: 048
  11. CYCLOBENZAPRINE HCL [Concomitant]
     Active Substance: CYCLOBENZAPRINE HYDROCHLORIDE
     Route: 048
  12. OXYCODONE HCL [Concomitant]
     Active Substance: OXYCODONE HYDROCHLORIDE
     Dosage: 30 MG,  EXTENDED RELEASE 12 HR TAKE 1 PO,THREE TIMES A DAY
     Route: 048
  13. SAVELLA [Concomitant]
     Active Substance: MILNACIPRAN HYDROCHLORIDE
     Route: 048
  14. ATIVAN [Concomitant]
     Active Substance: LORAZEPAM
     Indication: NAUSEA
     Dosage: 1 MG TABLET(S) TAKE 1 PO 04H PRN (AS REQUIRED)
     Route: 048
  15. POTASSIUM CHLORIDE/GLUCOSAMINE [Concomitant]
     Dosage: SOLID (GLUCOSAMINE SULFATE 2KCL)
     Route: 048
  16. LYRICA [Concomitant]
     Active Substance: PREGABALIN
     Route: 048
  17. ONDANSETRON HCL [Concomitant]
     Active Substance: ONDANSETRON HYDROCHLORIDE
     Indication: NAUSEA
     Dosage: 8 MG, TAKE 1,   EVERY EIGHT HOURS, AS REQUIRED
     Route: 048
  18. IBRANCE [Suspect]
     Active Substance: PALBOCICLIB
     Indication: BREAST CANCER METASTATIC
     Route: 048
  19. FASLODEX [Suspect]
     Active Substance: FULVESTRANT
     Indication: BREAST CANCER METASTATIC
     Route: 030
     Dates: start: 201403
  20. BACLOFEN. [Concomitant]
     Active Substance: BACLOFEN
     Route: 048
  21. LIDODERM [Concomitant]
     Active Substance: LIDOCAINE
     Dosage: 5%(700MG) ADHESIVE PATCH(ES), MEDICATED TAKE 2 PATCH(ES) TOPICAL DAILY
     Route: 061

REACTIONS (12)
  - Gait disturbance [Unknown]
  - Multiple sclerosis [Unknown]
  - Osteonecrosis [Unknown]
  - Neck deformity [Unknown]
  - Malaise [Unknown]
  - Metastases to bone [Unknown]
  - Paraesthesia [Unknown]
  - Muscular weakness [Unknown]
  - Musculoskeletal discomfort [Unknown]
  - Cervical cord compression [Unknown]
  - Product use issue [Unknown]
  - Pain [Unknown]

NARRATIVE: CASE EVENT DATE: 20140718
